FAERS Safety Report 5158206-2 (Version None)
Quarter: 2006Q4

REPORT INFORMATION
  Report Type: 
  Country: None (occurrence: None)
  Receive Date: 20061121
  Receipt Date: 20061121
  Transmission Date: 20070319
  Serious: Yes (Life-Threatening, Hospitalization)
  Sender: FDA-Public Use
  Company Number: None

PATIENT
  Age: 72 Year
  Sex: Male
  Weight: 75 kg

DRUGS (10)
  1. DOXIL [Suspect]
     Indication: PROSTATE CANCER
     Dosage: 40 MG/M2 80 MG Q 28 DAYS IV
     Route: 042
     Dates: start: 20060608, end: 20061005
  2. THALIDOMIDE [Suspect]
     Indication: PROSTATE CANCER
     Dosage: 50 MG 2 TABS DAILY PO
     Route: 048
     Dates: start: 20060608, end: 20061005
  3. ALBUTEROL [Concomitant]
  4. ASPIRIN [Concomitant]
  5. CA(+) + VIT D [Concomitant]
  6. DECADRON [Concomitant]
  7. COLACE [Concomitant]
  8. FLOVENT [Concomitant]
  9. PROTONIX [Concomitant]
  10. SENOKOT [Concomitant]

REACTIONS (4)
  - BLOOD POTASSIUM INCREASED [None]
  - BLOOD SODIUM DECREASED [None]
  - LABORATORY TEST ABNORMAL [None]
  - RETCHING [None]
